FAERS Safety Report 19561818 (Version 1)
Quarter: 2021Q3

REPORT INFORMATION
  Report Type: Other
  Country: CA (occurrence: CA)
  Receive Date: 20210715
  Receipt Date: 20210715
  Transmission Date: 20211014
  Serious: Yes (Other)
  Sender: FDA-Public Use
  Company Number: CA-ROCHE-2633706

PATIENT
  Age: 54 Year
  Sex: Female

DRUGS (12)
  1. FAMPYRA [Concomitant]
     Active Substance: DALFAMPRIDINE
  2. TYLENOL [Concomitant]
     Active Substance: ACETAMINOPHEN
     Indication: PAIN
  3. RABEPRAZOLE [Concomitant]
     Active Substance: RABEPRAZOLE
  4. REACTINE (CANADA) [Concomitant]
     Active Substance: CETIRIZINE HYDROCHLORIDE
  5. CYMBALTA [Concomitant]
     Active Substance: DULOXETINE HYDROCHLORIDE
  6. BACLOFEN. [Concomitant]
     Active Substance: BACLOFEN
  7. LAMOTRIGINE. [Concomitant]
     Active Substance: LAMOTRIGINE
     Dosage: TWO TABS TWICE DAILY
  8. VITAMIN D3 [Concomitant]
     Active Substance: CHOLECALCIFEROL
  9. OCREVUS [Suspect]
     Active Substance: OCRELIZUMAB
     Indication: RELAPSING-REMITTING MULTIPLE SCLEROSIS
     Dosage: 300 MG DAY 0, 14 THEN 600 MG Q6M,CONCENTRATE FOR INTRAVENOUS INFUSION
     Route: 042
     Dates: start: 20200625
  10. LYRICA [Concomitant]
     Active Substance: PREGABALIN
  11. QUETIAPINE. [Concomitant]
     Active Substance: QUETIAPINE
  12. ADVIL [Concomitant]
     Active Substance: IBUPROFEN
     Indication: PAIN

REACTIONS (2)
  - Infusion related reaction [Recovered/Resolved]
  - Anaphylactic reaction [Recovering/Resolving]

NARRATIVE: CASE EVENT DATE: 20200625
